FAERS Safety Report 18777112 (Version 1)
Quarter: 2021Q1

REPORT INFORMATION
  Report Type: Report from Study
  Country: None (occurrence: US)
  Receive Date: 20210123
  Receipt Date: 20210123
  Transmission Date: 20210419
  Serious: Yes (Hospitalization)
  Sender: FDA-Public Use
  Company Number: US-ABBVIE-21K-163-3740352-00

PATIENT
  Age: 77 Year
  Sex: Female

DRUGS (1)
  1. RINVOQ [Suspect]
     Active Substance: UPADACITINIB
     Indication: RHEUMATOID ARTHRITIS
     Route: 048
     Dates: start: 20201103

REACTIONS (11)
  - Constipation [Recovering/Resolving]
  - Gastrointestinal motility disorder [Unknown]
  - Abnormal faeces [Recovering/Resolving]
  - Abdominal pain upper [Unknown]
  - Disturbance in attention [Unknown]
  - Chest discomfort [Unknown]
  - COVID-19 [Recovering/Resolving]
  - Pain [Unknown]
  - Arthralgia [Not Recovered/Not Resolved]
  - Pain [Unknown]
  - Faeces hard [Unknown]

NARRATIVE: CASE EVENT DATE: 202012
